FAERS Safety Report 9207582 (Version 3)
Quarter: 2014Q1

REPORT INFORMATION
  Report Type: Report from Study
  Country: US (occurrence: US)
  Receive Date: 20130403
  Receipt Date: 20140224
  Transmission Date: 20141002
  Serious: Yes (Death, Hospitalization)
  Sender: FDA-Public Use
  Company Number: US-ROCHE-1209545

PATIENT
  Age: 65 Year
  Sex: Female

DRUGS (1)
  1. CELLCEPT [Suspect]
     Indication: LIVER TRANSPLANT
     Route: 048

REACTIONS (2)
  - Death [Fatal]
  - Hip fracture [Unknown]
